FAERS Safety Report 8925061 (Version 2)
Quarter: 2012Q4

REPORT INFORMATION
  Report Type: 
  Country: CA (occurrence: CA)
  Receive Date: 20121126
  Receipt Date: 20121220
  Transmission Date: 20130627
  Serious: Yes (Hospitalization)
  Sender: FDA-Public Use
  Company Number: CA-BRISTOL-MYERS SQUIBB COMPANY-17148149

PATIENT
  Sex: Female

DRUGS (2)
  1. COUMADIN [Suspect]
  2. PROGRAF [Concomitant]
     Indication: IMMUNOSUPPRESSION

REACTIONS (1)
  - Drug interaction [Unknown]
